FAERS Safety Report 4554297-8 (Version None)
Quarter: 2004Q4

REPORT INFORMATION
  Report Type: 
  Country: None (occurrence: None)
  Receive Date: 20041230
  Receipt Date: 20040714
  Transmission Date: 20050328
  Serious: Yes (Hospitalization)
  Sender: FDA-Public Use
  Company Number: 04-07-1013

PATIENT
  Age: 45 Year
  Sex: Male

DRUGS (1)
  1. CLOZAPINE [Suspect]
     Dosage: 150-450 MG QD ORAL
     Route: 048
     Dates: start: 20030801, end: 20040601

REACTIONS (2)
  - PSYCHOTIC DISORDER [None]
  - RASH MACULAR [None]
